FAERS Safety Report 5012307-8 (Version None)
Quarter: 2006Q2

REPORT INFORMATION
  Report Type: 
  Country: None (occurrence: None)
  Receive Date: 20060525
  Receipt Date: 20060525
  Transmission Date: 20061013
  Serious: Yes (Life-Threatening)
  Sender: FDA-Public Use
  Company Number: None

PATIENT
  Age: 56 Year
  Sex: Female
  Weight: 56.6996 kg

DRUGS (1)
  1. CORTISONE ACETATE 25MG TAB [Suspect]
     Indication: ADRENOCORTICAL INSUFFICIENCY CHRONIC
     Dosage: 25 MG ONE A DAY [LIFE TIME]

REACTIONS (1)
  - PHARMACEUTICAL PRODUCT COMPLAINT [None]
